FAERS Safety Report 14035312 (Version 1)
Quarter: 2017Q4

REPORT INFORMATION
  Report Type: Spontaneous
  Country: GB (occurrence: GB)
  Receive Date: 20171003
  Receipt Date: 20171003
  Transmission Date: 20180321
  Serious: Yes (Other)
  Sender: FDA-Public Use
  Company Number: GB-TEVA-810799ACC

PATIENT
  Age: 74 Year

DRUGS (1)
  1. TAMSULOSIN [Suspect]
     Active Substance: TAMSULOSIN

REACTIONS (3)
  - Eye burns [Unknown]
  - Drug prescribing error [Unknown]
  - Cataract operation complication [Unknown]

NARRATIVE: CASE EVENT DATE: 20151118
